FAERS Safety Report 10066206 (Version 2)
Quarter: 2014Q2

REPORT INFORMATION
  Report Type: Report from Study
  Country: DE (occurrence: DE)
  Receive Date: 20140408
  Receipt Date: 20140514
  Transmission Date: 20141212
  Serious: Yes (Hospitalization)
  Sender: FDA-Public Use
  Company Number: DE-CELGENEUS-062-21660-14034347

PATIENT
  Age: 42 Year
  Sex: Female
  Weight: 64 kg

DRUGS (7)
  1. ABRAXANE [Suspect]
     Indication: BREAST CANCER
     Route: 041
     Dates: start: 20140306
  2. ABRAXANE [Suspect]
     Route: 041
     Dates: start: 20140402
  3. EPIRUBICIN [Suspect]
     Indication: BREAST CANCER
     Route: 041
     Dates: start: 20140123, end: 20140220
  4. ZANIC [Concomitant]
     Indication: PRODUCT USED FOR UNKNOWN INDICATION
     Dosage: 50 MILLIGRAM
     Route: 065
     Dates: start: 20140320, end: 20140320
  5. DEXAMETHASONE [Concomitant]
     Indication: PRODUCT USED FOR UNKNOWN INDICATION
     Dosage: 4 MILLIGRAM
     Route: 065
     Dates: start: 20140320, end: 20140320
  6. CITALOPRAM [Concomitant]
     Indication: PRODUCT USED FOR UNKNOWN INDICATION
     Route: 065
     Dates: start: 20131001
  7. TAVEGIL [Concomitant]
     Indication: PRODUCT USED FOR UNKNOWN INDICATION
     Dosage: 2 MILLIGRAM
     Route: 065
     Dates: start: 20140320, end: 20140320

REACTIONS (1)
  - Cardiovascular disorder [Recovered/Resolved]
